FAERS Safety Report 9611489 (Version 2)
Quarter: 2013Q4

REPORT INFORMATION
  Report Type: Spontaneous
  Country: US (occurrence: US)
  Receive Date: 20131010
  Receipt Date: 20131118
  Transmission Date: 20140711
  Serious: Yes (Other)
  Sender: FDA-Public Use
  Company Number: US-THROMBOGENICS INC.-JET-2013-250

PATIENT
  Age: 66 Year
  Sex: Male

DRUGS (4)
  1. JETREA [Suspect]
     Indication: VITREOUS ADHESIONS
     Dosage: 0.1 CC, 0.25 MG, ONE TIME DOSE
     Route: 031
     Dates: start: 20130501, end: 20130501
  2. JETREA [Suspect]
     Indication: MACULAR HOLE
  3. CENTRUM SILVER                     /02363801/ [Concomitant]
     Indication: PRODUCT USED FOR UNKNOWN INDICATION
     Dosage: 1 UNK, QD
  4. ASA [Concomitant]
     Indication: PRODUCT USED FOR UNKNOWN INDICATION
     Dosage: 81 MG, QD
     Dates: end: 20130620

REACTIONS (1)
  - Retinal haemorrhage [Recovered/Resolved]
